FAERS Safety Report 16342207 (Version 1)
Quarter: 2019Q2

REPORT INFORMATION
  Report Type: Report from Study
  Country: US (occurrence: US)
  Receive Date: 20190522
  Receipt Date: 20190522
  Transmission Date: 20190711
  Serious: Yes (Other)
  Sender: FDA-Public Use
  Company Number: US-PFIZER INC-2019213446

PATIENT
  Age: 21 Year
  Sex: Female

DRUGS (3)
  1. CYCLOSPORINE. [Concomitant]
     Active Substance: CYCLOSPORINE
     Indication: ALOPECIA AREATA
     Dosage: UNK
  2. TOFACITINIB [Suspect]
     Active Substance: TOFACITINIB
     Dosage: 5 MG, 2X/DAY (HIGHEST DOSE TOFACITINIB)
     Route: 048
  3. TOFACITINIB [Suspect]
     Active Substance: TOFACITINIB
     Indication: ALOPECIA AREATA
     Dosage: 5 MG, DAILY (LOWEST DOSE TOFACITINIB)
     Route: 048

REACTIONS (1)
  - Multiple sclerosis [Unknown]
